FAERS Safety Report 8994896 (Version 1)
Quarter: 2012Q4

REPORT INFORMATION
  Report Type: Spontaneous
  Country: GB (occurrence: None)
  Receive Date: 20121221
  Receipt Date: 20121221
  Transmission Date: 20130627
  Serious: Yes (Hospitalization, Other)
  Sender: FDA-Public Use
  Company Number: AUR-APL-2012-05381

PATIENT
  Age: 55 Year
  Sex: Female

DRUGS (7)
  1. CETIRIZINE (CETIRIZINE) [Suspect]
     Indication: MIGRAINE
  2. ABACAVIR\LAMIVUDINE [Suspect]
     Indication: HIV INFECTION
     Dosage: 1 Dosage forms (1 Dosage forms, 1 in D)
     Route: 048
     Dates: start: 201103, end: 201205
  3. AMITRIPTYLINE (AMITRIPTYLINE) [Suspect]
     Indication: MIGRAINE
  4. CAFFEINE (CAFFEINE) [Suspect]
     Indication: MIGRAINE
  5. MEFENAMIC ACID [Suspect]
     Indication: MIGRAINE
  6. REYATAZ [Suspect]
     Indication: HIV INFECTION
     Dosage: (300 mg, 1 in 1 D)
     Route: 048
     Dates: start: 201103, end: 201205
  7. RITONAVIR [Suspect]
     Indication: HIV INFECTION
     Dosage: (100 mg, 1 in 1 D)
     Route: 048
     Dates: start: 201103, end: 201205

REACTIONS (9)
  - Nausea [None]
  - Vomiting [None]
  - Paraesthesia [None]
  - Pain in extremity [None]
  - Paraesthesia [None]
  - Pain in extremity [None]
  - Lactic acidosis [None]
  - Mononeuropathy multiplex [None]
  - Metabolic acidosis [None]
